FAERS Safety Report 4483489-1 (Version None)
Quarter: 2004Q4

REPORT INFORMATION
  Report Type: 
  Country: None (occurrence: None)
  Receive Date: 20041020
  Receipt Date: 20041007
  Transmission Date: 20050328
  Serious: Yes (Other)
  Sender: FDA-Public Use
  Company Number: 2004073687

PATIENT
  Sex: Male
  Weight: 86.1834 kg

DRUGS (2)
  1. VIAGRA [Suspect]
     Indication: ERECTILE DYSFUNCTION
     Dosage: 25 MG, ORAL
     Route: 048
     Dates: start: 20020101
  2. GLYBURIDE [Concomitant]

REACTIONS (4)
  - CARPAL TUNNEL DECOMPRESSION [None]
  - DRUG EFFECT DECREASED [None]
  - DYSPEPSIA [None]
  - URINE ODOUR ABNORMAL [None]
